FAERS Safety Report 26195643 (Version 1)
Quarter: 2025Q4

REPORT INFORMATION
  Report Type: Spontaneous
  Country: US (occurrence: US)
  Receive Date: 20251224
  Receipt Date: 20251224
  Transmission Date: 20260118
  Serious: No
  Sender: STRIDES
  Company Number: US-STRIDES ARCOLAB LIMITED-2025SP014247

PATIENT

DRUGS (2)
  1. METHOTREXATE [Suspect]
     Active Substance: METHOTREXATE
     Indication: Central nervous system lymphoma
     Dosage: 3.5 GRAM PER SQUARE METRE (EIGHT 14-DAY CYCLES OF HIGH DOSE METHOTREXATE 3.5 G/M2 FOR 8 DAYS)
     Route: 065
  2. GLUCARPIDASE [Suspect]
     Active Substance: GLUCARPIDASE
     Indication: Central nervous system lymphoma
     Dosage: 2000 UNITS
     Route: 065

REACTIONS (1)
  - Hypersensitivity [Unknown]
